FAERS Safety Report 13143798 (Version 6)
Quarter: 2017Q2

REPORT INFORMATION
  Report Type: Report from Study
  Country: CA (occurrence: CA)
  Receive Date: 20170124
  Receipt Date: 20170419
  Transmission Date: 20170830
  Serious: Yes (Other)
  Sender: FDA-Public Use
  Company Number: CA-JNJFOC-20161212539

PATIENT
  Age: 26 Year
  Sex: Female
  Weight: 86 kg

DRUGS (5)
  1. REMICADE [Suspect]
     Active Substance: INFLIXIMAB
     Indication: CROHN^S DISEASE
     Route: 042
  2. REMICADE [Suspect]
     Active Substance: INFLIXIMAB
     Indication: CROHN^S DISEASE
     Route: 042
     Dates: start: 20170127
  3. REMICADE [Suspect]
     Active Substance: INFLIXIMAB
     Indication: CROHN^S DISEASE
     Route: 042
     Dates: start: 20170411
  4. REMICADE [Suspect]
     Active Substance: INFLIXIMAB
     Indication: CROHN^S DISEASE
     Route: 042
  5. REMICADE [Suspect]
     Active Substance: INFLIXIMAB
     Indication: CROHN^S DISEASE
     Dosage: 5 MG/KG
     Route: 042
     Dates: start: 20150825

REACTIONS (12)
  - Drug level decreased [Unknown]
  - Conjunctivitis [Not Recovered/Not Resolved]
  - Acne [Not Recovered/Not Resolved]
  - Eczema [Not Recovered/Not Resolved]
  - Sinusitis [Unknown]
  - Gingival disorder [Recovering/Resolving]
  - Product use issue [Unknown]
  - Crohn^s disease [Recovering/Resolving]
  - General physical health deterioration [Not Recovered/Not Resolved]
  - Laryngitis [Unknown]
  - Stomatitis [Not Recovered/Not Resolved]
  - Off label use [Unknown]

NARRATIVE: CASE EVENT DATE: 20170126
